FAERS Safety Report 8011801-5 (Version None)
Quarter: 2011Q4

REPORT INFORMATION
  Report Type: 
  Country: None (occurrence: None)
  Receive Date: 20111228
  Receipt Date: 20111215
  Transmission Date: 20120403
  Serious: Yes (Hospitalization)
  Sender: FDA-Public Use
  Company Number: US-CELGENEUS-163-50794-11062619

PATIENT
  Sex: Female

DRUGS (6)
  1. VIDAZA [Suspect]
     Dosage: 76 MILLIGRAM
     Route: 041
     Dates: start: 20110503
  2. FUROSEMIDE [Concomitant]
     Dosage: 40 MILLIGRAM
     Route: 048
  3. LIPITOR [Concomitant]
     Dosage: 20 MILLIGRAM
     Route: 048
  4. RED BLOOD CELLS [Concomitant]
     Dosage: 2 UNITS
     Route: 041
     Dates: start: 20110408
  5. WARFARIN SODIUM [Concomitant]
     Indication: ARRHYTHMIA
     Dosage: 1.5 MILLIGRAM
     Route: 048
  6. DACOGEN [Concomitant]
     Route: 065

REACTIONS (1)
  - FLUID RETENTION [None]
